FAERS Safety Report 4335764-9 (Version None)
Quarter: 2004Q2

REPORT INFORMATION
  Report Type: 
  Country: None (occurrence: None)
  Receive Date: 20040409
  Receipt Date: 20040401
  Transmission Date: 20050107
  Serious: Yes (Hospitalization)
  Sender: FDA-Public Use
  Company Number: US-BRISTOL-MYERS SQUIBB COMPANY-12548251

PATIENT
  Age: 60 Year
  Sex: Male
  Weight: 93 kg

DRUGS (11)
  1. VP-16 [Suspect]
     Indication: PROSTATE CANCER
     Dates: start: 20030316, end: 20030316
  2. TAXOL [Suspect]
     Indication: PROSTATE CANCER
     Dates: start: 20030316, end: 20030316
  3. EMCYT [Suspect]
     Indication: PROSTATE CANCER
     Dosage: X 14 DAYS
     Route: 048
     Dates: start: 20030121, end: 20030316
  4. EPOGEN [Concomitant]
     Dates: start: 20030318
  5. IRON SUPPLEMENT [Concomitant]
     Dates: start: 20030318
  6. ZOFRAN [Concomitant]
     Dates: start: 20030316
  7. BENADRYL [Concomitant]
     Dates: start: 20030316
  8. PEPCID [Concomitant]
     Dates: start: 20030316
  9. CEFZIL [Concomitant]
     Dates: start: 20030318
  10. COMPAZINE [Concomitant]
     Dates: start: 20030318
  11. ZOLADEX [Concomitant]
     Route: 058
     Dates: start: 20020827

REACTIONS (3)
  - ATELECTASIS [None]
  - PLEURAL EFFUSION [None]
  - PULMONARY EMBOLISM [None]
